FAERS Safety Report 6810775-X (Version None)
Quarter: 2010Q2

REPORT INFORMATION
  Report Type: 
  Country: None (occurrence: None)
  Receive Date: 20100630
  Receipt Date: 20080312
  Transmission Date: 20101027
  Serious: No
  Sender: FDA-Public Use
  Company Number: US-PFIZER INC-2008023798

PATIENT
  Sex: Male
  Weight: 92.53 kg

DRUGS (1)
  1. GLYBURIDE [Suspect]
     Indication: DIABETES MELLITUS
     Dates: end: 20080310

REACTIONS (2)
  - IMMUNE SYSTEM DISORDER [None]
  - PAIN [None]
